FAERS Safety Report 17525523 (Version 5)
Quarter: 2020Q3

REPORT INFORMATION
  Report Type: Report from Study
  Country: BR (occurrence: BR)
  Receive Date: 20200311
  Receipt Date: 20200904
  Transmission Date: 20201102
  Serious: Yes (Other)
  Sender: FDA-Public Use
  Company Number: BR-BIOGEN-2020BI00847069

PATIENT
  Age: 41 Year
  Sex: Female
  Weight: 65 kg

DRUGS (8)
  1. AVONEX PEN [Suspect]
     Active Substance: INTERFERON BETA-1A
     Indication: MULTIPLE SCLEROSIS
     Route: 030
     Dates: start: 201908, end: 202002
  2. DIVALCON [Concomitant]
     Active Substance: DIVALPROEX SODIUM
     Indication: SEIZURE
     Route: 065
  3. QUETIAPINE FUMARATE. [Concomitant]
     Active Substance: QUETIAPINE FUMARATE
     Indication: DEPRESSION
     Route: 065
  4. AVONEX PEN [Suspect]
     Active Substance: INTERFERON BETA-1A
  5. AVONEX PEN [Suspect]
     Active Substance: INTERFERON BETA-1A
     Route: 030
     Dates: start: 20190809, end: 202002
  6. DESVE [Concomitant]
     Indication: DEPRESSION
     Route: 065
  7. AVONEX PEN [Suspect]
     Active Substance: INTERFERON BETA-1A
     Route: 030
     Dates: start: 20190809, end: 20200208
  8. NEURAL (LAMOTRIGINE) [Concomitant]
     Indication: SEIZURE
     Route: 065

REACTIONS (22)
  - Injection site erythema [Recovered/Resolved]
  - Fatigue [Not Recovered/Not Resolved]
  - Headache [Recovered/Resolved]
  - Tremor [Not Recovered/Not Resolved]
  - Memory impairment [Unknown]
  - Pain [Recovered/Resolved]
  - Muscular weakness [Not Recovered/Not Resolved]
  - Pain in extremity [Not Recovered/Not Resolved]
  - Depression [Unknown]
  - Psychotic disorder [Unknown]
  - Facial paralysis [Unknown]
  - Treatment failure [Recovered/Resolved]
  - Peripheral paralysis [Recovered/Resolved]
  - Panic reaction [Recovered/Resolved]
  - Cough [Unknown]
  - Multiple sclerosis relapse [Recovered/Resolved]
  - Hemiparesis [Not Recovered/Not Resolved]
  - Ataxia [Not Recovered/Not Resolved]
  - Motor dysfunction [Not Recovered/Not Resolved]
  - Nasopharyngitis [Recovered/Resolved]
  - Asthenia [Unknown]
  - Gait disturbance [Not Recovered/Not Resolved]

NARRATIVE: CASE EVENT DATE: 201908
